FAERS Safety Report 8090858-X (Version None)
Quarter: 2012Q1

REPORT INFORMATION
  Report Type: 
  Country: None (occurrence: None)
  Receive Date: 20120131
  Receipt Date: 20120127
  Transmission Date: 20120608
  Serious: Yes (Life-Threatening, Hospitalization)
  Sender: FDA-Public Use
  Company Number: US-BAYER-2012-009125

PATIENT
  Sex: Female

DRUGS (2)
  1. YASMIN [Suspect]
     Indication: MENSTRUAL DISORDER
     Dosage: UNK
     Dates: start: 20070601
  2. YAZ [Suspect]
     Indication: MENSTRUAL DISORDER
     Dosage: UNK
     Dates: start: 20070601

REACTIONS (5)
  - ANXIETY [None]
  - PAIN [None]
  - BILIARY COLIC [None]
  - INJURY [None]
  - DEFORMITY [None]
